FAERS Safety Report 9168029 (Version 2)
Quarter: 2013Q2

REPORT INFORMATION
  Report Type: Report from Study
  Country: US (occurrence: US)
  Receive Date: 20130318
  Receipt Date: 20130412
  Transmission Date: 20140414
  Serious: Yes (Death, Other)
  Sender: FDA-Public Use
  Company Number: US-ASTELLAS-2013US002864

PATIENT
  Sex: Male

DRUGS (1)
  1. ERLOTINIB TABLET [Suspect]
     Indication: LUNG NEOPLASM MALIGNANT
     Dosage: 150 MG, UID/QD
     Route: 048
     Dates: start: 20121102, end: 20121105

REACTIONS (5)
  - Malignant neoplasm progression [Fatal]
  - Metastases to pleura [Unknown]
  - Metastases to central nervous system [Unknown]
  - Nausea [Unknown]
  - Vomiting [Unknown]
